FAERS Safety Report 25224849 (Version 1)
Quarter: 2025Q2

REPORT INFORMATION
  Report Type: Spontaneous
  Country: US (occurrence: US)
  Receive Date: 20250422
  Receipt Date: 20250422
  Transmission Date: 20250717
  Serious: Yes (Other)
  Sender: AUROBINDO
  Company Number: US-AUROBINDO-AUR-APL-2025-020407

PATIENT
  Age: 77 Year
  Sex: Male

DRUGS (11)
  1. VORICONAZOLE [Suspect]
     Active Substance: VORICONAZOLE
     Indication: Keratitis fungal
     Dosage: 200 MILLIGRAM, TWO TIMES A DAY
     Route: 048
  2. NATAMYCIN [Suspect]
     Active Substance: NATAMYCIN
     Indication: Keratitis fungal
     Route: 065
  3. POSACONAZOLE [Concomitant]
     Active Substance: POSACONAZOLE
     Indication: Keratitis fungal
     Dosage: 300 MILLIGRAM, TWO TIMES A DAY
     Route: 048
  4. DOXYCYCLINE [Concomitant]
     Active Substance: DOXYCYCLINE
     Indication: Keratitis fungal
     Dosage: 100 MILLIGRAM, TWO TIMES A DAY
     Route: 048
  5. MOXIFLOXACIN [Concomitant]
     Active Substance: MOXIFLOXACIN
     Indication: Glaucoma
     Route: 061
  6. LOTEPREDNOL [Concomitant]
     Active Substance: LOTEPREDNOL
     Indication: Glaucoma
     Route: 061
  7. LATANOPROST [Concomitant]
     Active Substance: LATANOPROST
     Indication: Product used for unknown indication
     Route: 061
  8. PREDNISOLONE ACETATE [Concomitant]
     Active Substance: PREDNISOLONE ACETATE
     Indication: Product used for unknown indication
     Route: 061
  9. BRIMONIDINE [Concomitant]
     Active Substance: BRIMONIDINE TARTRATE
     Indication: Product used for unknown indication
     Route: 061
  10. TIMOLOL [Concomitant]
     Active Substance: TIMOLOL
     Indication: Product used for unknown indication
     Route: 061
  11. CENEGERMIN [Concomitant]
     Active Substance: CENEGERMIN
     Indication: Product used for unknown indication
     Route: 061

REACTIONS (1)
  - Drug ineffective [Unknown]
